FAERS Safety Report 4755831-5 (Version None)
Quarter: 2005Q3

REPORT INFORMATION
  Report Type: 
  Country: None (occurrence: None)
  Receive Date: 20050830
  Receipt Date: 20050421
  Transmission Date: 20060218
  Serious: Yes (Other)
  Sender: FDA-Public Use
  Company Number: US-BRISTOL-MYERS SQUIBB COMPANY-12942728

PATIENT
  Sex: Female

DRUGS (17)
  1. ERBITUX [Suspect]
     Indication: COLON CANCER METASTATIC
     Route: 042
     Dates: start: 20050419, end: 20050419
  2. BENADRYL [Concomitant]
     Indication: PREMEDICATION
     Route: 048
     Dates: start: 20050419, end: 20050419
  3. HYDROCORTISONE [Concomitant]
     Indication: PREMEDICATION
     Route: 042
     Dates: start: 20050419, end: 20050419
  4. FLUOROURACIL [Concomitant]
     Route: 042
     Dates: start: 20050414, end: 20050414
  5. LEUCOVORIN [Concomitant]
     Route: 042
     Dates: start: 20050414, end: 20050414
  6. OXALIPLATIN [Concomitant]
     Route: 042
     Dates: start: 20050414, end: 20050414
  7. ANZEMET [Concomitant]
     Indication: PREMEDICATION
     Route: 042
     Dates: start: 20050414, end: 20050414
  8. ATIVAN [Concomitant]
     Indication: PREMEDICATION
     Route: 048
     Dates: start: 20050414, end: 20050414
  9. PREVACID [Concomitant]
     Indication: PREMEDICATION
     Route: 048
     Dates: start: 20050414, end: 20050414
  10. SOLU-CORTEF [Concomitant]
     Indication: PREMEDICATION
     Route: 042
     Dates: start: 20050414, end: 20050414
  11. ATENOLOL [Concomitant]
  12. COUMADIN [Concomitant]
     Dosage: ALTERNATING DOSES OF 2 MG AND 1 MG DAILY.
  13. DYAZIDE [Concomitant]
     Dosage: 37.5/25.
  14. FOSAMAX [Concomitant]
  15. K-DUR 10 [Concomitant]
  16. PREMARIN [Concomitant]
     Route: 062
  17. SYNTHROID [Concomitant]

REACTIONS (2)
  - DYSPHAGIA [None]
  - RASH [None]
